FAERS Safety Report 9658475 (Version 1)
Quarter: 2013Q4

REPORT INFORMATION
  Report Type: Spontaneous
  Country: US (occurrence: US)
  Receive Date: 20131030
  Receipt Date: 20131030
  Transmission Date: 20140711
  Serious: Yes (Other)
  Sender: FDA-Public Use
  Company Number: US-NAPPMUNDI-USA-2012-0084829

PATIENT
  Age: 39 Year
  Sex: Male

DRUGS (2)
  1. OXYCONTIN (NDA 22-272) [Suspect]
     Indication: PAIN
     Dosage: 2 TABLET, DAILY
  2. PERCOCET /00867901/ [Suspect]
     Indication: PAIN
     Dosage: 6 TABLET, DAILY

REACTIONS (3)
  - Drug withdrawal syndrome [Unknown]
  - Hallucination [Unknown]
  - Convulsion [Unknown]
